FAERS Safety Report 7600284-2 (Version None)
Quarter: 2011Q3

REPORT INFORMATION
  Report Type: 
  Country: None (occurrence: None)
  Receive Date: 20110706
  Receipt Date: 20110706
  Transmission Date: 20111222
  Serious: Yes (Other)
  Sender: FDA-Public Use
  Company Number: None

PATIENT
  Age: 27 Year
  Sex: Male
  Weight: 81.6475 kg

DRUGS (1)
  1. PROPECIA [Suspect]
     Indication: ALOPECIA
     Dosage: 1 PILL ONCE PER DAY PO
     Route: 048
     Dates: start: 20000701, end: 20080101

REACTIONS (4)
  - DRY SKIN [None]
  - LOSS OF LIBIDO [None]
  - FLAT AFFECT [None]
  - ERECTILE DYSFUNCTION [None]
